FAERS Safety Report 14907456 (Version 1)
Quarter: 2018Q2

REPORT INFORMATION
  Report Type: Spontaneous
  Country: US (occurrence: US)
  Receive Date: 20180428
  Receipt Date: 20180428
  Transmission Date: 20180711
  Serious: Yes (Other)
  Sender: FDA-Public Use
  Company Number: None

PATIENT
  Age: 41 Year
  Sex: Male
  Weight: 83.25 kg

DRUGS (2)
  1. UP AND UP NIGHTTIME COLD AND FLU [Suspect]
     Active Substance: ACETAMINOPHEN\DEXTROMETHORPHAN HYDROBROMIDE\DOXYLAMINE SUCCINATE
     Indication: UPPER RESPIRATORY TRACT INFECTION
     Dosage: ?          QUANTITY:12 OUNCE(S);?
     Route: 048
     Dates: start: 20180419, end: 20180423
  2. UP AND UP NIGHTTIME COLD AND FLU [Suspect]
     Active Substance: ACETAMINOPHEN\DEXTROMETHORPHAN HYDROBROMIDE\DOXYLAMINE SUCCINATE
     Indication: SLEEP DISORDER THERAPY
     Dosage: ?          QUANTITY:12 OUNCE(S);?
     Route: 048
     Dates: start: 20180419, end: 20180423

REACTIONS (1)
  - Haematospermia [None]

NARRATIVE: CASE EVENT DATE: 20180419
